FAERS Safety Report 5901996-9 (Version None)
Quarter: 2008Q3

REPORT INFORMATION
  Report Type: 
  Country: None (occurrence: None)
  Receive Date: 20080929
  Receipt Date: 20070502
  Transmission Date: 20090109
  Serious: No
  Sender: FDA-Public Use
  Company Number: A0650100A

PATIENT
  Age: 14 Year
  Sex: Male

DRUGS (3)
  1. FORTAZ [Suspect]
     Dosage: 125MG UNKNOWN
     Route: 033
     Dates: start: 20070324, end: 20070330
  2. CEFAZOLIN [Suspect]
     Route: 033
     Dates: start: 20070324, end: 20070330
  3. DIANEAL [Concomitant]

REACTIONS (2)
  - PYREXIA [None]
  - RASH [None]
